FAERS Safety Report 10426102 (Version 1)
Quarter: 2014Q3

REPORT INFORMATION
  Report Type: Spontaneous
  Country: US (occurrence: US)
  Receive Date: 20140903
  Receipt Date: 20140903
  Transmission Date: 20150326
  Serious: No
  Sender: FDA-Public Use
  Company Number: US-009507513-1409USA000689

PATIENT
  Age: 24 Year
  Sex: Female

DRUGS (3)
  1. TERBINAFINE [Concomitant]
     Active Substance: TERBINAFINE
     Indication: ANTIFUNGAL PROPHYLAXIS
  2. NOXAFIL [Suspect]
     Active Substance: POSACONAZOLE
     Indication: ANTIFUNGAL PROPHYLAXIS
     Dosage: UNK
     Route: 048
  3. VORICONAZOLE. [Concomitant]
     Active Substance: VORICONAZOLE

REACTIONS (1)
  - Drug ineffective [Unknown]
